FAERS Safety Report 7657424 (Version 6)
Quarter: 2013Q1

REPORT INFORMATION
  Report Type: Spontaneous
  Country: US (occurrence: US)
  Receive Date: 20101105
  Receipt Date: 20130315
  Transmission Date: 20140127
  Serious: Yes (Hospitalization)
  Sender: FDA-Public Use
  Company Number: US-BAYER-201039500NA

PATIENT
  Age: 18 Year
  Sex: Female
  Weight: 63.64 kg

DRUGS (6)
  1. YAZ [Suspect]
     Indication: MENORRHAGIA
     Route: 048
     Dates: start: 200709, end: 200803
  2. YAZ [Suspect]
     Indication: DYSMENORRHOEA
  3. YAZ [Suspect]
     Indication: MENSTRUAL CYCLE MANAGEMENT
  4. IBUPROFEN [Concomitant]
     Indication: FIBROMA
  5. IBUPROFEN [Concomitant]
     Indication: CYST RUPTURE
  6. AMOXICILLIN [Concomitant]

REACTIONS (8)
  - Pulmonary embolism [Recovered/Resolved]
  - Chest pain [Recovered/Resolved]
  - Dyspnoea [Recovered/Resolved]
  - Heart rate irregular [Recovered/Resolved]
  - Loss of consciousness [Recovered/Resolved]
  - Tachycardia [Recovered/Resolved]
  - Gait disturbance [Recovered/Resolved]
  - Off label use [None]
